FAERS Safety Report 18141564 (Version 8)
Quarter: 2020Q4

REPORT INFORMATION
  Report Type: Report from Study
  Country: BE (occurrence: BE)
  Receive Date: 20200812
  Receipt Date: 20201231
  Transmission Date: 20210113
  Serious: Yes (Hospitalization, Other)
  Sender: FDA-Public Use
  Company Number: BE-BRISTOL-MYERS SQUIBB COMPANY-BMS-2020-064183

PATIENT
  Age: 65 Year
  Sex: Female

DRUGS (4)
  1. IPILIMUMAB [Suspect]
     Active Substance: IPILIMUMAB
     Indication: MALIGNANT MELANOMA
     Dosage: 184.5 MILLIGRAM, Q3WK
     Route: 042
     Dates: start: 20200723, end: 20200805
  2. L-THYROXINE [LEVOTHYROXINE] [Concomitant]
     Active Substance: LEVOTHYROXINE
     Indication: PRODUCT USED FOR UNKNOWN INDICATION
     Dosage: 175 MICROGRAM
     Route: 048
  3. NIVOLUMAB [Suspect]
     Active Substance: NIVOLUMAB
     Dosage: UNK UNK, Q2WK
     Route: 042
     Dates: start: 20200915
  4. NIVOLUMAB [Suspect]
     Active Substance: NIVOLUMAB
     Indication: MALIGNANT MELANOMA
     Dosage: 61.5 MILLIGRAM, Q3WK
     Route: 042
     Dates: start: 20200723, end: 20200805

REACTIONS (9)
  - Dyspnoea [Recovered/Resolved]
  - Cough [Recovered/Resolved]
  - Colitis [Recovered/Resolved]
  - Back pain [Not Recovered/Not Resolved]
  - Rash pruritic [Recovered/Resolved]
  - Oliguria [Recovered/Resolved]
  - Pneumonitis [Unknown]
  - Bone neoplasm [Unknown]
  - Fatigue [Not Recovered/Not Resolved]

NARRATIVE: CASE EVENT DATE: 20200804
